FAERS Safety Report 21439884 (Version 2)
Quarter: 2022Q4

REPORT INFORMATION
  Report Type: Spontaneous
  Country: GB (occurrence: None)
  Receive Date: 20221011
  Receipt Date: 20221223
  Transmission Date: 20230113
  Serious: Yes (Death, Other)
  Sender: FDA-Public Use
  Company Number: 2022A340025

PATIENT
  Age: 79 Year
  Sex: Male

DRUGS (8)
  1. ACALABRUTINIB [Suspect]
     Active Substance: ACALABRUTINIB
     Indication: Chronic lymphocytic leukaemia
     Dosage: 100MG, TWO TIMES A DAY
     Route: 065
     Dates: start: 20220930
  2. COTRIMOXAZOLE [Concomitant]
     Active Substance: SULFAMETHOXAZOLE\TRIMETHOPRIM
     Dosage: 100MG, TWO TIMES A DAY
     Route: 065
     Dates: start: 20220930
  3. AMOXICILLIN\CLAVULANATE POTASSIUM [Concomitant]
     Active Substance: AMOXICILLIN\CLAVULANATE POTASSIUM
     Dosage: 100MG, TWO TIMES A DAY
     Route: 065
     Dates: start: 20220930
  4. FUROSEMIDE [Concomitant]
     Active Substance: FUROSEMIDE
     Dosage: 100MG, TWO TIMES A DAY
     Route: 065
     Dates: start: 20220930
  5. ENOXAPARIN [Concomitant]
     Active Substance: ENOXAPARIN
     Dosage: 100MG, TWO TIMES A DAY
     Route: 065
     Dates: start: 20220930
  6. ACYCLOVIR [Concomitant]
     Active Substance: ACYCLOVIR
     Dosage: 100MG, TWO TIMES A DAY
     Route: 065
     Dates: start: 20220930
  7. FAMOTIDINE [Concomitant]
     Active Substance: FAMOTIDINE
     Dosage: 100MG, TWO TIMES A DAY
     Route: 065
     Dates: start: 20220930
  8. TENOFOVIR [Concomitant]
     Active Substance: TENOFOVIR
     Dosage: 100MG, TWO TIMES A DAY
     Route: 065
     Dates: start: 20220930

REACTIONS (2)
  - Arrhythmia [Fatal]
  - Pulmonary oedema [Unknown]

NARRATIVE: CASE EVENT DATE: 20221002
